FAERS Safety Report 23894303 (Version 6)
Quarter: 2024Q2

REPORT INFORMATION
  Report Type: Spontaneous
  Country: US (occurrence: US)
  Receive Date: 20240524
  Receipt Date: 20240626
  Transmission Date: 20240715
  Serious: No
  Sender: FDA-Public Use
  Company Number: US-002147023-NVSC2024US106358

PATIENT

DRUGS (3)
  1. AMLODIPINE\VALSARTAN [Suspect]
     Active Substance: AMLODIPINE\VALSARTAN
     Indication: Hypertension
     Dosage: UNK (AMLODIPINE 5 MG AND VALSARTAN 160 MG)
     Route: 065
  2. NEBIVOLOL [Suspect]
     Active Substance: NEBIVOLOL
     Indication: Hypertension
     Dosage: UNK
     Route: 065
  3. NEBIVOLOL [Suspect]
     Active Substance: NEBIVOLOL
     Dosage: 5 MG
     Route: 065

REACTIONS (12)
  - Limb discomfort [Unknown]
  - Chest discomfort [Unknown]
  - Piloerection [Unknown]
  - Heart rate decreased [Unknown]
  - Neuralgia [Unknown]
  - Formication [Unknown]
  - Muscle spasms [Unknown]
  - Somnolence [Unknown]
  - Paraesthesia [Unknown]
  - Pruritus [Unknown]
  - Myalgia [Unknown]
  - Hypertension [Unknown]
